FAERS Safety Report 17614765 (Version 1)
Quarter: 2020Q2

REPORT INFORMATION
  Report Type: Spontaneous
  Country: US (occurrence: US)
  Receive Date: 20200401
  Receipt Date: 20200401
  Transmission Date: 20200713
  Serious: Yes (Death, Life-Threatening)
  Sender: FDA-Public Use
  Company Number: None

PATIENT
  Age: 65 Year
  Sex: Male
  Weight: 105.3 kg

DRUGS (23)
  1. CISTARACURIJM [Concomitant]
  2. EXOXAPARIN [Concomitant]
  3. SERTRALINE [Concomitant]
     Active Substance: SERTRALINE HYDROCHLORIDE
  4. SENNOSIDES. [Concomitant]
     Active Substance: SENNOSIDES
  5. ASPIRIN. [Concomitant]
     Active Substance: ASPIRIN
  6. KETOCONAZOLE 2% SHAMPOO [Concomitant]
     Active Substance: KETOCONAZOLE
  7. CALCIUM CARBONATE. [Concomitant]
     Active Substance: CALCIUM CARBONATE
  8. VERSED [Concomitant]
     Active Substance: MIDAZOLAM HYDROCHLORIDE
  9. APIXABAN [Concomitant]
     Active Substance: APIXABAN
  10. NITROGLYCERIN SL [Concomitant]
     Active Substance: NITROGLYCERIN
  11. HEPARIN [Concomitant]
     Active Substance: HEPARIN SODIUM
  12. PROPOFOL CONTINUOUS INFUSION [Concomitant]
  13. DONEPEZIL. [Concomitant]
     Active Substance: DONEPEZIL
  14. SERTRRALINE [Concomitant]
  15. SEVELAMER [Concomitant]
     Active Substance: SEVELAMER
  16. HYDROXYCHLOROQUINE [Suspect]
     Active Substance: HYDROXYCHLOROQUINE
     Indication: CORONAVIRUS INFECTION
     Dosage: ?          OTHER DOSE:400-200 MG;?
     Route: 048
     Dates: start: 20200315, end: 20200317
  17. DOCUSATE SODIUM. [Concomitant]
     Active Substance: DOCUSATE SODIUM
  18. PANTOPRAZOLE [Concomitant]
     Active Substance: PANTOPRAZOLE
  19. HALDOL [Concomitant]
     Active Substance: HALOPERIDOL
  20. CEFEPIME [Concomitant]
     Active Substance: CEFEPIME HYDROCHLORIDE
  21. CHLORHEXIDINE [Concomitant]
     Active Substance: CHLORHEXIDINE
  22. FENTANYL. [Concomitant]
     Active Substance: FENTANYL
  23. DARUNAVIR/COBISTAT [Concomitant]
     Active Substance: COBICISTAT\DARUNAVIR ETHANOLATE

REACTIONS (3)
  - Electrocardiogram QT prolonged [None]
  - Coronavirus infection [None]
  - Cytokine storm [None]

NARRATIVE: CASE EVENT DATE: 20200317
